FAERS Safety Report 5387587-X (Version None)
Quarter: 2007Q3

REPORT INFORMATION
  Report Type: 
  Country: None (occurrence: None)
  Receive Date: 20070711
  Receipt Date: 20070627
  Transmission Date: 20080115
  Serious: Yes (Other)
  Sender: FDA-Public Use
  Company Number: 310002M07ESP

PATIENT
  Age: 19 Year
  Sex: Female

DRUGS (2)
  1. GONAL-F [Suspect]
     Indication: INFERTILITY FEMALE
     Dosage: 225 IU, 1 IN 1 DAYS, SUBCUTANEOUS
     Route: 058
     Dates: start: 20070228, end: 20070308
  2. CETROTIDE [Suspect]
     Indication: INFERTILITY FEMALE

REACTIONS (1)
  - ANAPHYLACTIC REACTION [None]
